FAERS Safety Report 24433782 (Version 1)
Quarter: 2024Q4

REPORT INFORMATION
  Report Type: Spontaneous
  Country: JP (occurrence: JP)
  Receive Date: 20241014
  Receipt Date: 20241014
  Transmission Date: 20250114
  Serious: Yes (Death)
  Sender: ROCHE
  Company Number: JP-ROCHE-10000103710

PATIENT
  Age: 71 Year
  Sex: Male

DRUGS (1)
  1. TOCILIZUMAB [Suspect]
     Active Substance: TOCILIZUMAB
     Indication: Rheumatoid arthritis
     Dosage: TOTAL 3 CYCLES
     Route: 042
     Dates: start: 200807, end: 200810

REACTIONS (2)
  - Liver injury [Fatal]
  - Jaundice [Fatal]
